FAERS Safety Report 5492011-2 (Version None)
Quarter: 2007Q4

REPORT INFORMATION
  Report Type: 
  Country: None (occurrence: None)
  Receive Date: 20071022
  Receipt Date: 20071015
  Transmission Date: 20080405
  Serious: Yes (Other)
  Sender: FDA-Public Use
  Company Number: B0491962A

PATIENT
  Age: 44 Year
  Sex: Female
  Weight: 115 kg

DRUGS (1)
  1. AVANDIA [Suspect]
     Dosage: 4MG PER DAY
     Route: 048
     Dates: start: 20040101, end: 20070922

REACTIONS (2)
  - PATHOLOGICAL FRACTURE [None]
  - WRIST FRACTURE [None]
